FAERS Safety Report 6241499-8 (Version None)
Quarter: 2009Q2

REPORT INFORMATION
  Report Type: 
  Country: None (occurrence: None)
  Receive Date: 20090623
  Receipt Date: 20090623
  Transmission Date: 20091009
  Serious: No
  Sender: FDA-Public Use
  Company Number: DE-EISAI INC.-E2090-00770-SPO-DE

PATIENT
  Age: 22 Year
  Sex: Male

DRUGS (2)
  1. ZONEGRAN [Suspect]
     Indication: COMPLEX PARTIAL SEIZURES
     Route: 048
     Dates: start: 20090407, end: 20090511
  2. KEPPRA [Concomitant]
     Dosage: UNKNOWN
     Route: 048

REACTIONS (3)
  - ANXIETY [None]
  - ILLUSION [None]
  - VERTIGO [None]
